FAERS Safety Report 10723784 (Version 1)
Quarter: 2015Q1

REPORT INFORMATION
  Report Type: Spontaneous
  Country: JP (occurrence: JP)
  Receive Date: 20150120
  Receipt Date: 20150120
  Transmission Date: 20150721
  Serious: Yes (Other)
  Sender: FDA-Public Use
  Company Number: JP-BAYER-2015-007632

PATIENT
  Sex: Male

DRUGS (2)
  1. PLETAAL [Concomitant]
     Active Substance: CILOSTAZOL
     Route: 048
  2. BAYASPIRIN [Suspect]
     Active Substance: ASPIRIN
     Dosage: DAILY DOSE 100 MG
     Route: 048
     Dates: start: 20140108

REACTIONS (1)
  - Liver disorder [Unknown]

NARRATIVE: CASE EVENT DATE: 20150109
